FAERS Safety Report 4673245-3 (Version None)
Quarter: 2005Q2

REPORT INFORMATION
  Report Type: 
  Country: None (occurrence: None)
  Receive Date: 20050525
  Receipt Date: 20050517
  Transmission Date: 20051028
  Serious: Yes (Hospitalization)
  Sender: FDA-Public Use
  Company Number: 200514451GDDC

PATIENT
  Age: 78 Year
  Sex: Female

DRUGS (1)
  1. GAVISCON [Suspect]
     Indication: DYSPEPSIA
     Dosage: DOSE: UNK
     Route: 048

REACTIONS (2)
  - ELECTROCARDIOGRAM ABNORMAL [None]
  - MEDICATION ERROR [None]
